FAERS Safety Report 25042248 (Version 1)
Quarter: 2025Q1

REPORT INFORMATION
  Report Type: Spontaneous
  Country: US (occurrence: US)
  Receive Date: 20250305
  Receipt Date: 20250305
  Transmission Date: 20250408
  Serious: Yes (Death)
  Sender: EISAI
  Company Number: US-Eisai-EC-2025-185203

PATIENT
  Age: 73 Year
  Sex: Female

DRUGS (1)
  1. LEQEMBI [Suspect]
     Active Substance: LECANEMAB-IRMB
     Indication: Dementia Alzheimer^s type

REACTIONS (3)
  - Cerebral haemorrhage [Fatal]
  - Infusion related reaction [Unknown]
  - Cognitive disorder [Unknown]
